FAERS Safety Report 18474428 (Version 2)
Quarter: 2020Q4

REPORT INFORMATION
  Report Type: Spontaneous
  Country: US (occurrence: US)
  Receive Date: 20201106
  Receipt Date: 20201109
  Transmission Date: 20210114
  Serious: Yes (Other)
  Sender: FDA-Public Use
  Company Number: US-JNJFOC-20201110434

PATIENT

DRUGS (1)
  1. DIPHENHYDRAMINE HYDROCHLORIDE. [Suspect]
     Active Substance: DIPHENHYDRAMINE HYDROCHLORIDE
     Indication: EUPHORIC MOOD
     Route: 065

REACTIONS (3)
  - Intentional product misuse [Unknown]
  - Drug abuse [Unknown]
  - Drug dependence [Unknown]
